FAERS Safety Report 4900347-6 (Version None)
Quarter: 2006Q1

REPORT INFORMATION
  Report Type: 
  Country: None (occurrence: None)
  Receive Date: 20060203
  Receipt Date: 20060130
  Transmission Date: 20060701
  Serious: Yes (Other)
  Sender: FDA-Public Use
  Company Number: CLAV2006-0001

PATIENT
  Age: 30 Year
  Sex: Male

DRUGS (2)
  1. CLAVURION [Suspect]
     Indication: OTITIS MEDIA ACUTE
     Dates: start: 20060103
  2. NASOLIN [Concomitant]
     Dates: start: 20060103

REACTIONS (4)
  - CLOSTRIDIUM COLITIS [None]
  - DIARRHOEA [None]
  - LYMPHOCYTE PERCENTAGE DECREASED [None]
  - WHITE BLOOD CELL COUNT INCREASED [None]
